FAERS Safety Report 15514801 (Version 1)
Quarter: 2018Q4

REPORT INFORMATION
  Report Type: Spontaneous
  Country: BR (occurrence: BR)
  Receive Date: 20181016
  Receipt Date: 20181016
  Transmission Date: 20190205
  Serious: Yes (Other)
  Sender: FDA-Public Use
  Company Number: BR-UCBSA-2018009812

PATIENT
  Age: 8 Year
  Sex: Male
  Weight: 36 kg

DRUGS (5)
  1. KEPPRA [Suspect]
     Active Substance: LEVETIRACETAM
     Indication: SEIZURE
     Dosage: 250MG EVERY 8 HOURS
     Route: 048
     Dates: start: 201702, end: 2017
  2. DEPAKENE [Concomitant]
     Active Substance: VALPROIC ACID
     Indication: SEIZURE
     Dosage: 10 ML, 3X/DAY (TID)
     Route: 048
     Dates: start: 2015
  3. MIRTAZAPINE. [Concomitant]
     Active Substance: MIRTAZAPINE
     Indication: SEIZURE
     Dosage: UNK
     Route: 048
     Dates: start: 2015
  4. KEPPRA [Suspect]
     Active Substance: LEVETIRACETAM
     Dosage: 500 MG, 2X/DAY (BID) (2 TABLETS TWICE DAILY)
     Route: 048
     Dates: start: 201710, end: 201809
  5. KEPPRA [Suspect]
     Active Substance: LEVETIRACETAM
     Dosage: 750 MG, 2X/DAY (BID)
     Route: 048
     Dates: start: 201809

REACTIONS (5)
  - Drug ineffective [Unknown]
  - Salivary hypersecretion [Not Recovered/Not Resolved]
  - Wrong technique in product usage process [Unknown]
  - Seizure [Not Recovered/Not Resolved]
  - Off label use [Unknown]

NARRATIVE: CASE EVENT DATE: 201702
